FAERS Safety Report 7038332-3 (Version None)
Quarter: 2010Q4

REPORT INFORMATION
  Report Type: 
  Country: None (occurrence: None)
  Receive Date: 20101011
  Receipt Date: 20090923
  Transmission Date: 20110411
  Serious: No
  Sender: FDA-Public Use
  Company Number: US-PFIZER INC-2009273270

PATIENT
  Age: 40 Year
  Sex: Female

DRUGS (6)
  1. GABAPENTIN [Suspect]
     Indication: HEADACHE
     Dosage: UNK
     Dates: start: 20090201
  2. CELEXA [Suspect]
     Indication: ANXIETY
     Dosage: 10 MG, 1X/DAY
     Route: 048
     Dates: start: 20090701
  3. DEPAKOTE [Concomitant]
     Dosage: UNK
  4. ACIPHEX [Concomitant]
     Dosage: UNK
  5. CRESTOR [Concomitant]
     Dosage: UNK
  6. ACETYLSALICYLIC ACID [Concomitant]
     Dosage: 81 MG, 1 IN 1 D
     Route: 048

REACTIONS (2)
  - DIZZINESS [None]
  - PHOTOPSIA [None]
